FAERS Safety Report 7156584-6 (Version None)
Quarter: 2010Q4

REPORT INFORMATION
  Report Type: 
  Country: None (occurrence: None)
  Receive Date: 20101214
  Receipt Date: 20091106
  Transmission Date: 20110411
  Serious: No
  Sender: FDA-Public Use
  Company Number: US-ASTRAZENECA-2009SE24892

PATIENT
  Age: 82 Year
  Sex: Female
  Weight: 55.3 kg

DRUGS (6)
  1. CRESTOR [Suspect]
     Indication: BLOOD CHOLESTEROL INCREASED
     Route: 048
     Dates: start: 20091101
  2. CRESTOR [Suspect]
     Route: 048
  3. CRESTOR [Suspect]
     Route: 048
  4. NORVASC [Concomitant]
  5. TRANDATE [Concomitant]
  6. SYNTHROID [Concomitant]

REACTIONS (3)
  - ARTHRITIS [None]
  - ASTHENIA [None]
  - PAIN [None]
